FAERS Safety Report 4704497-9 (Version None)
Quarter: 2005Q2

REPORT INFORMATION
  Report Type: 
  Country: None (occurrence: None)
  Receive Date: 20050630
  Receipt Date: 20050524
  Transmission Date: 20051028
  Serious: Yes (Life-Threatening, Hospitalization, Other)
  Sender: FDA-Public Use
  Company Number: PHBS2005CZ07356

PATIENT
  Age: 14 Year
  Sex: Male

DRUGS (3)
  1. IMIPRAMINE [Suspect]
     Indication: DEPRESSION
     Dosage: 25 MG/D
     Route: 048
  2. IMIPRAMINE [Suspect]
     Dosage: 2350 MG, ONCE/SINGLE
     Route: 065
     Dates: start: 20040620, end: 20040620
  3. IBUPROFEN [Suspect]
     Dosage: 800 MG, ONCE/SINGLE
     Route: 048
     Dates: start: 20040620, end: 20040620

REACTIONS (35)
  - ANTIDEPRESSANT DRUG LEVEL INCREASED [None]
  - ANURIA [None]
  - ARTERIAL CATHETERISATION [None]
  - BLADDER CATHETER PERMANENT [None]
  - BLEEDING TIME PROLONGED [None]
  - BUNDLE BRANCH BLOCK RIGHT [None]
  - CARDIAC FAILURE [None]
  - CARDIAC OUTPUT DECREASED [None]
  - CARDIOVASCULAR DISORDER [None]
  - CATHETERISATION VENOUS [None]
  - COMA [None]
  - DISSEMINATED INTRAVASCULAR COAGULATION [None]
  - DRUG TOXICITY [None]
  - ELECTROCARDIOGRAM QRS COMPLEX PROLONGED [None]
  - GASTRIC LAVAGE [None]
  - GASTROINTESTINAL HAEMORRHAGE [None]
  - HAEMODIALYSIS [None]
  - HYPOREFLEXIA [None]
  - HYPOTENSION [None]
  - INTENTIONAL MISUSE [None]
  - INTUBATION [None]
  - LOSS OF CONSCIOUSNESS [None]
  - MUCOSAL HAEMORRHAGE [None]
  - MYDRIASIS [None]
  - NERVOUS SYSTEM DISORDER [None]
  - NODAL ARRHYTHMIA [None]
  - PLATELET COUNT DECREASED [None]
  - PUPILLARY REFLEX IMPAIRED [None]
  - RENAL FAILURE [None]
  - RESPIRATORY DEPRESSION [None]
  - RESPIRATORY FAILURE [None]
  - SINUS ARRHYTHMIA [None]
  - SUICIDE ATTEMPT [None]
  - THROMBOCYTOPENIA [None]
  - VOMITING [None]
